FAERS Safety Report 4895498-9 (Version None)
Quarter: 2006Q1

REPORT INFORMATION
  Report Type: 
  Country: None (occurrence: None)
  Receive Date: 20060125
  Receipt Date: 20060112
  Transmission Date: 20060701
  Serious: Yes (Hospitalization, Other)
  Sender: FDA-Public Use
  Company Number: 2005040624

PATIENT
  Age: 62 Year
  Sex: Male

DRUGS (11)
  1. LIPITOR [Suspect]
     Indication: BLOOD CHOLESTEROL INCREASED
  2. NORVASC [Suspect]
     Indication: ILL-DEFINED DISORDER
  3. HERBAL PREPARATION (HERBAL PREPARATION) [Suspect]
     Indication: ILL-DEFINED DISORDER
  4. ACCUPRIL [Concomitant]
  5. LOVASTATIN [Concomitant]
  6. TOPROL-XL [Concomitant]
  7. INDAPAMIDE [Concomitant]
  8. GLIPIZIDE [Concomitant]
  9. ACTOS [Concomitant]
  10. DICLOFENAC SODIUM [Concomitant]
  11. PLAVIX [Concomitant]

REACTIONS (2)
  - ATRIAL FIBRILLATION [None]
  - DRUG INTERACTION [None]
